FAERS Safety Report 9768079 (Version 4)
Quarter: 2015Q2

REPORT INFORMATION
  Report Type: Report from Study
  Country: CA (occurrence: CA)
  Receive Date: 20131217
  Receipt Date: 20150424
  Transmission Date: 20150821
  Serious: Yes (Other)
  Sender: FDA-Public Use
  Company Number: CA-ABBVIE-13P-028-1168504-00

PATIENT
  Sex: Male
  Weight: 93.07 kg

DRUGS (3)
  1. CIPRALEX [Concomitant]
     Active Substance: ESCITALOPRAM OXALATE
     Indication: ANXIETY
     Route: 048
  2. HUMIRA [Suspect]
     Active Substance: ADALIMUMAB
     Indication: PSORIASIS
     Route: 058
     Dates: start: 20090318, end: 201305
  3. HUMIRA [Suspect]
     Active Substance: ADALIMUMAB
     Route: 058
     Dates: start: 20140112

REACTIONS (4)
  - Precancerous cells present [Recovered/Resolved]
  - Intestinal polyp [Recovered/Resolved]
  - Incisional hernia [Not Recovered/Not Resolved]
  - Incision site infection [Recovered/Resolved]

NARRATIVE: CASE EVENT DATE: 2013
